FAERS Safety Report 6434410-8 (Version None)
Quarter: 2009Q4

REPORT INFORMATION
  Report Type: 
  Country: None (occurrence: None)
  Receive Date: 20091110
  Receipt Date: 20080929
  Transmission Date: 20100525
  Serious: No
  Sender: FDA-Public Use
  Company Number: US-ASTRAZENECA-2009UW15298

PATIENT
  Age: 73 Year
  Sex: Female

DRUGS (2)
  1. PRILOSEC OTC [Suspect]
     Indication: OESOPHAGEAL DISORDER
     Dosage: 1 TABLET, 1 /DAY FOR 6 DAYS
     Route: 048
     Dates: start: 20080922, end: 20080927
  2. FOLIRON H [Concomitant]
     Dosage: UNKNOWN

REACTIONS (3)
  - ARTHRALGIA [None]
  - DIZZINESS [None]
  - TONGUE DISCOLOURATION [None]
